FAERS Safety Report 14420080 (Version 1)
Quarter: 2018Q1

REPORT INFORMATION
  Report Type: Spontaneous
  Country: US (occurrence: US)
  Receive Date: 20180122
  Receipt Date: 20180122
  Transmission Date: 20180509
  Serious: No
  Sender: FDA-Public Use
  Company Number: US-ROCHE-1864457

PATIENT
  Sex: Male

DRUGS (3)
  1. RITUXAN [Suspect]
     Active Substance: RITUXIMAB
     Route: 042
     Dates: start: 20161013
  2. RITUXAN [Suspect]
     Active Substance: RITUXIMAB
     Route: 042
     Dates: start: 20161020
  3. RITUXAN [Suspect]
     Active Substance: RITUXIMAB
     Indication: IMMUNE THROMBOCYTOPENIC PURPURA
     Route: 042
     Dates: start: 20161006

REACTIONS (8)
  - Hypokinesia [Not Recovered/Not Resolved]
  - Stomatitis [Recovered/Resolved]
  - Weight decreased [Recovered/Resolved]
  - Ill-defined disorder [Not Recovered/Not Resolved]
  - Walking aid user [Not Recovered/Not Resolved]
  - Arthralgia [Not Recovered/Not Resolved]
  - Mastication disorder [Recovered/Resolved]
  - Decreased appetite [Recovered/Resolved]
